FAERS Safety Report 5259616-5 (Version None)
Quarter: 2007Q1

REPORT INFORMATION
  Report Type: 
  Country: None (occurrence: None)
  Receive Date: 20070309
  Receipt Date: 20070228
  Transmission Date: 20070707
  Serious: Yes (Life-Threatening)
  Sender: FDA-Public Use
  Company Number: GB-JNJFOC-20070300675

PATIENT
  Age: 49 Year
  Sex: Female
  Weight: 78.18 kg

DRUGS (7)
  1. TOPIRAMATE [Suspect]
     Indication: MIGRAINE
     Route: 048
  2. DOMPERIDONE [Concomitant]
     Indication: MIGRAINE
     Route: 048
  3. DOMPERIDONE [Concomitant]
     Indication: ENDOMETRIOSIS
     Route: 048
  4. DICLOFENAC SODIUM [Concomitant]
     Indication: MIGRAINE
     Route: 048
  5. DICLOFENAC SODIUM [Concomitant]
     Indication: ENDOMETRIOSIS
     Route: 048
  6. TRAMADOL HCL [Concomitant]
     Indication: MIGRAINE
     Route: 048
  7. TRAMADOL HCL [Concomitant]
     Indication: ENDOMETRIOSIS
     Route: 048

REACTIONS (3)
  - ATRIAL FLUTTER [None]
  - ATRIOVENTRICULAR BLOCK [None]
  - CARDIAC ARREST [None]
